FAERS Safety Report 8301370-4 (Version None)
Quarter: 2012Q2

REPORT INFORMATION
  Report Type: 
  Country: None (occurrence: None)
  Receive Date: 20120420
  Receipt Date: 20120411
  Transmission Date: 20120825
  Serious: Yes (Hospitalization)
  Sender: FDA-Public Use
  Company Number: US-ABBOTT-12P-163-0919831-00

PATIENT
  Sex: Male
  Weight: 122.58 kg

DRUGS (6)
  1. HUMIRA [Suspect]
     Indication: CROHN'S DISEASE
     Dates: start: 20100101, end: 20111201
  2. NEXIUM [Concomitant]
     Indication: GASTRIC DISORDER
  3. WELLBUTRIN [Concomitant]
     Indication: DEPRESSION
  4. LOSARTAN POTASSIUM [Concomitant]
     Indication: BLOOD PRESSURE
  5. HUMIRA [Suspect]
     Indication: GASTROINTESTINAL INFLAMMATION
  6. ABILIFY [Concomitant]
     Indication: DEPRESSION

REACTIONS (11)
  - ABDOMINAL DISTENSION [None]
  - PAIN [None]
  - GASTROINTESTINAL BACTERIAL INFECTION [None]
  - DIARRHOEA [None]
  - MUSCLE SPASMS [None]
  - DRUG INEFFECTIVE [None]
  - IRRITABLE BOWEL SYNDROME [None]
  - CROHN'S DISEASE [None]
  - BACK PAIN [None]
  - NASAL CONGESTION [None]
  - OEDEMA PERIPHERAL [None]
